FAERS Safety Report 6894464-1 (Version None)
Quarter: 2010Q3

REPORT INFORMATION
  Report Type: 
  Country: None (occurrence: None)
  Receive Date: 20100802
  Receipt Date: 20100723
  Transmission Date: 20110219
  Serious: Yes (Other)
  Sender: FDA-Public Use
  Company Number: CA-ABBOTT-10P-028-0640973-00

PATIENT
  Sex: Female

DRUGS (12)
  1. HUMIRA [Suspect]
     Indication: CROHN'S DISEASE
     Route: 058
     Dates: start: 20100122
  2. ZOPICLONE [Concomitant]
     Indication: INSOMNIA
     Route: 048
  3. MORPHINE SULFATE [Concomitant]
     Indication: PAIN IN EXTREMITY
     Route: 048
     Dates: start: 20090301
  4. MORPHINE PUMP [Concomitant]
     Indication: PAIN IN EXTREMITY
     Dates: start: 19940101
  5. LYRICA [Concomitant]
     Indication: PAIN IN EXTREMITY
     Route: 048
  6. MULTI-VITAMINS [Concomitant]
     Indication: VITAMIN SUPPLEMENTATION
     Route: 048
  7. CALCIUM [Concomitant]
     Indication: MINERAL SUPPLEMENTATION
     Route: 048
     Dates: start: 19950101
  8. VITAMIN D [Concomitant]
     Indication: MINERAL SUPPLEMENTATION
     Route: 048
     Dates: start: 19950101
  9. VITAMIN B6 [Concomitant]
     Indication: HAIR DISORDER
     Route: 048
     Dates: start: 19950101
  10. VITAMIN B6 [Concomitant]
     Indication: SKIN DISORDER
  11. OMEGA 3-6-9 [Concomitant]
     Indication: SUPPLEMENTATION THERAPY
     Route: 048
     Dates: start: 20090101
  12. ASPIRIN [Concomitant]
     Indication: PROPHYLAXIS
     Route: 048

REACTIONS (2)
  - PAIN IN EXTREMITY [None]
  - SCIATICA [None]
